FAERS Safety Report 6762608-8 (Version None)
Quarter: 2010Q2

REPORT INFORMATION
  Report Type: 
  Country: None (occurrence: None)
  Receive Date: 20100609
  Receipt Date: 20100528
  Transmission Date: 20101027
  Serious: Yes (Life-Threatening, Hospitalization)
  Sender: FDA-Public Use
  Company Number: NO-MERCK-1005NOR00002

PATIENT
  Age: 70 Year
  Sex: Male

DRUGS (9)
  1. PROSCAR [Suspect]
     Indication: BENIGN PROSTATIC HYPERPLASIA
     Route: 048
     Dates: start: 20051013
  2. ASPIRIN AND MAGNESIUM OXIDE [Concomitant]
     Route: 065
  3. FUROSEMIDE [Concomitant]
     Route: 048
  4. METOPROLOL TARTRATE [Concomitant]
     Route: 065
  5. SIMVASTATIN [Concomitant]
     Route: 048
  6. WARFARIN SODIUM [Concomitant]
     Route: 048
  7. RAMIPRIL [Concomitant]
     Route: 048
  8. METFORMIN [Concomitant]
     Route: 048
  9. ESOMEPRAZOLE MAGNESIUM [Concomitant]
     Route: 048

REACTIONS (1)
  - CARDIAC ARREST [None]
